FAERS Safety Report 18778021 (Version 1)
Quarter: 2021Q1

REPORT INFORMATION
  Report Type: Other
  Country: AT (occurrence: AT)
  Receive Date: 20210122
  Receipt Date: 20210122
  Transmission Date: 20210419
  Serious: Yes (Other)
  Sender: FDA-Public Use
  Company Number: AT-ROCHE-2754438

PATIENT
  Age: 48 Year
  Sex: Female
  Weight: 60 kg

DRUGS (6)
  1. TRASTUZUMAB. [Suspect]
     Active Substance: TRASTUZUMAB
     Indication: HER2 POSITIVE BREAST CANCER
     Dosage: MOST RECENT DOSE PRIOR TO THE EVENT: 04/MAR/2019
     Route: 042
     Dates: start: 20190208, end: 20190208
  2. PERTUZUMAB. [Suspect]
     Active Substance: PERTUZUMAB
     Indication: HER2 POSITIVE BREAST CANCER
     Dosage: MOST RECENT DOSE PRIOR TO THE EVENT: 04/MAR/2019
     Route: 042
     Dates: start: 20190208, end: 20190208
  3. ANASTROZOLE. [Suspect]
     Active Substance: ANASTROZOLE
     Indication: HER2 POSITIVE BREAST CANCER
     Route: 048
     Dates: start: 20191113
  4. LETROZOLE. [Suspect]
     Active Substance: LETROZOLE
     Indication: HER2 POSITIVE BREAST CANCER
     Dosage: MOST RECENT DOSE PRIOR TO EVENT ONSET: 12/NOV/2019
     Route: 048
     Dates: start: 20190208
  5. GOSERELIN [Suspect]
     Active Substance: GOSERELIN
     Indication: HER2 POSITIVE BREAST CANCER
     Route: 058
     Dates: start: 20190208
  6. VINORELBINE [Suspect]
     Active Substance: VINORELBINE TARTRATE
     Indication: HER2 POSITIVE BREAST CANCER
     Dosage: MOST RECENT DOSE PRIOR TO EVENT ONSET: 18/SEP/2019
     Route: 048
     Dates: start: 20190418

REACTIONS (1)
  - Toxic skin eruption [Recovering/Resolving]

NARRATIVE: CASE EVENT DATE: 20200909
